FAERS Safety Report 22028965 (Version 1)
Quarter: 2023Q1

REPORT INFORMATION
  Report Type: Report from Study
  Country: IT (occurrence: IT)
  Receive Date: 20230223
  Receipt Date: 20230223
  Transmission Date: 20230418
  Serious: Yes (Hospitalization)
  Sender: FDA-Public Use
  Company Number: None

PATIENT
  Age: 75 Year
  Sex: Male

DRUGS (3)
  1. METFORMIN [Suspect]
     Active Substance: METFORMIN HYDROCHLORIDE
     Indication: Type 2 diabetes mellitus
     Dosage: DOSAGE: 1 UNIT OF MEASUREMENT: GRAMS FREQUENCY OF ADMINISTRATION: DAILY ROUTE OF ADMINISTRATION: ORA
     Route: 048
  2. TOUJEO [Suspect]
     Active Substance: INSULIN GLARGINE
     Indication: Type 2 diabetes mellitus
     Dosage: DOSAGE: 22 UNIT OF MEASURE: INTERNATIONAL UNITS, IN MILLIONS FREQUENCY OF ADMINISTRATION: DAILY ROUT
     Route: 058
  3. INSULIN LISPRO [Suspect]
     Active Substance: INSULIN LISPRO
     Indication: Type 2 diabetes mellitus
     Dosage: DOSAGE: 1 UNIT OF MEASUREMENT: INTERNATIONAL UNITS, IN MILLIONS FREQUENCY OF ADMINISTRATION: DAILY ,
     Route: 058

REACTIONS (2)
  - Seizure [Recovering/Resolving]
  - Hypoglycaemia [Recovering/Resolving]

NARRATIVE: CASE EVENT DATE: 20220711
